FAERS Safety Report 8851403 (Version 4)
Quarter: 2014Q1

REPORT INFORMATION
  Report Type: Report from Study
  Country: CA (occurrence: CA)
  Receive Date: 20121022
  Receipt Date: 20140217
  Transmission Date: 20141002
  Serious: Yes (Hospitalization, Other)
  Sender: FDA-Public Use
  Company Number: CA-ROCHE-1146994

PATIENT
  Age: 75 Year
  Sex: Male
  Weight: 86.2 kg

DRUGS (13)
  1. RITUXAN [Suspect]
     Indication: RHEUMATOID ARTHRITIS
     Dosage: DAY 1 AND 15
     Route: 042
     Dates: start: 20100416
  2. TYLENOL #3 (CANADA) [Concomitant]
  3. DEPO-MEDROL [Concomitant]
  4. METHOTREXATE [Concomitant]
     Route: 048
  5. FOLIC ACID [Concomitant]
  6. BISOPROLOL [Concomitant]
  7. ATACAND [Concomitant]
  8. ADVAIR [Concomitant]
  9. ATORVASTATIN [Concomitant]
  10. ASPIRIN [Concomitant]
     Route: 048
  11. DIPHENHYDRAMINE HCL [Concomitant]
     Route: 048
     Dates: start: 20100416
  12. ACETAMINOPHEN [Concomitant]
     Route: 048
     Dates: start: 20100416
  13. METHYLPREDNISOLONE [Concomitant]
     Route: 042
     Dates: start: 20130416

REACTIONS (6)
  - Fall [Recovered/Resolved]
  - Transient ischaemic attack [Recovered/Resolved]
  - Transient ischaemic attack [Recovered/Resolved]
  - Chronic obstructive pulmonary disease [Not Recovered/Not Resolved]
  - Rheumatoid arthritis [Unknown]
  - Eczema [Unknown]
